FAERS Safety Report 21688305 (Version 1)
Quarter: 2022Q4

REPORT INFORMATION
  Report Type: Report from Study
  Country: US (occurrence: US)
  Receive Date: 20221206
  Receipt Date: 20221206
  Transmission Date: 20230113
  Serious: Yes (Hospitalization)
  Sender: FDA-Public Use
  Company Number: US-ABBVIE-22K-163-4518514-00

PATIENT
  Sex: Female
  Weight: 49.895 kg

DRUGS (17)
  1. VENCLEXTA [Suspect]
     Active Substance: VENETOCLAX
     Indication: Acute myeloid leukaemia
     Route: 048
     Dates: start: 20220531
  2. VENCLEXTA [Suspect]
     Active Substance: VENETOCLAX
     Indication: Acute myeloid leukaemia
     Route: 048
     Dates: start: 20220514
  3. CALCIUM POLYCARBONATE [Concomitant]
     Indication: Product used for unknown indication
     Route: 048
  4. VITAMINS [Concomitant]
     Active Substance: VITAMINS
     Indication: Product used for unknown indication
     Route: 048
  5. DIFLUCAN [Concomitant]
     Active Substance: FLUCONAZOLE
     Indication: Product used for unknown indication
     Dosage: TAKE ONE TABLET (200 MG DOSE) BY MOUTH DAILY??FOR: HEME/ONC PROPHYLAXIS
     Route: 048
  6. LEVAQUIN [Concomitant]
     Active Substance: LEVOFLOXACIN
     Indication: Product used for unknown indication
     Dosage: TAKE 500 MG BY MOUTH DAILY.
     Route: 048
  7. VALTREX [Concomitant]
     Active Substance: VALACYCLOVIR HYDROCHLORIDE
     Indication: Antiviral prophylaxis
     Dosage: ONE TABLET (500 MG DOSE) BY MOUTH 2 (TWO) TIMES DAILY
     Route: 048
  8. VEMLIDY [Concomitant]
     Active Substance: TENOFOVIR ALAFENAMIDE FUMARATE
     Indication: Chronic hepatitis B
     Dosage: TAKE ONE TABLET (25 MG DOSE) BY MOUTH DAILY
     Route: 048
  9. REMERON [Concomitant]
     Active Substance: MIRTAZAPINE
     Indication: Product used for unknown indication
     Dosage: TAKE ONE HALF TABLET (3.75 MG DOSE) BY MOUTH AT BEDTIME.
     Route: 048
  10. PROCTO-MED HC [Concomitant]
     Active Substance: HYDROCORTISONE
     Indication: Product used for unknown indication
  11. LOTRIMIN [Concomitant]
     Active Substance: CLOTRIMAZOLE
     Indication: Product used for unknown indication
     Dosage: APPLY TOPICALLY 2 (TWO) TIMES DAILY.
  12. COMPAZINE [Concomitant]
     Active Substance: PROCHLORPERAZINE MALEATE
     Indication: Nausea
     Dosage: TAKE ONE TABLET (5 MG DOSE) BY MOUTH EVERY 6 (SIX) HOURS AS NEEDED
  13. PHENERGAN [Concomitant]
     Active Substance: PROMETHAZINE HYDROCHLORIDE
     Indication: Nausea
     Dosage: TAKE ONE TABLET (12.5 MG DOSE) BY MOUTH EVERY 6 (SIX) HOURS AS
  14. ZOFRAN [Concomitant]
     Active Substance: ONDANSETRON HYDROCHLORIDE
     Indication: Nausea
     Dosage: TAKE ONE TABLET (8MG) BY MOUTH EVERY EIGHT HOURS AS NEEDED FOR
     Route: 048
  15. ANUSOL-HC [Concomitant]
     Active Substance: HYDROCORTISONE
     Indication: Product used for unknown indication
     Dosage: PLACE ONE APPLICATION RECTALLY 2 TIMES DAILY
  16. PROCTOSOL HC [Concomitant]
     Indication: Product used for unknown indication
  17. IMODIUM [Concomitant]
     Active Substance: LOPERAMIDE HYDROCHLORIDE
     Indication: Product used for unknown indication
     Dosage: TAKE ONE CAPLULE (2MG) BY MOUTH 4 TIMES A DAY

REACTIONS (3)
  - Mobility decreased [Recovered/Resolved]
  - Hypothyroidism [Unknown]
  - Fatigue [Recovered/Resolved]

NARRATIVE: CASE EVENT DATE: 20220101
